FAERS Safety Report 4765539-8 (Version None)
Quarter: 2005Q3

REPORT INFORMATION
  Report Type: 
  Country: None (occurrence: None)
  Receive Date: 20050906
  Receipt Date: 20050818
  Transmission Date: 20060218
  Serious: Yes (Other)
  Sender: FDA-Public Use
  Company Number: FR_050806985

PATIENT
  Age: 37 Year
  Sex: Female

DRUGS (1)
  1. ZYPREXA [Suspect]
     Indication: SCHIZOPHRENIA
     Dates: start: 20000101, end: 20050601

REACTIONS (2)
  - MURDER [None]
  - SUICIDE ATTEMPT [None]
